FAERS Safety Report 6197173-X (Version None)
Quarter: 2009Q2

REPORT INFORMATION
  Report Type: 
  Country: None (occurrence: None)
  Receive Date: 20090520
  Receipt Date: 20090505
  Transmission Date: 20091009
  Serious: Yes (Death)
  Sender: FDA-Public Use
  Company Number: FR-GENENTECH-280106

PATIENT
  Sex: Male

DRUGS (19)
  1. RITUXIMAB [Suspect]
     Indication: NON-HODGKIN'S LYMPHOMA
     Dosage: 20 MG, UNK
     Route: 042
     Dates: start: 20090305
  2. METHOTREXATE [Suspect]
     Indication: NON-HODGKIN'S LYMPHOMA
     Dosage: 15 MG, UNK
     Route: 037
     Dates: start: 20090305
  3. ELDISINE [Concomitant]
     Indication: NON-HODGKIN'S LYMPHOMA
     Dosage: 3.6 MG, UNK
     Route: 042
     Dates: start: 20090306
  4. DOXORUBICIN HCL [Suspect]
     Indication: NON-HODGKIN'S LYMPHOMA
     Dosage: 134 MG, UNK
     Route: 042
     Dates: start: 20090306
  5. ENDOXAN [Suspect]
     Indication: NON-HODGKIN'S LYMPHOMA
     Dosage: 2140 MG, UNK
     Route: 042
     Dates: start: 20090306
  6. BLEOMYCIN SULFATE [Suspect]
     Indication: NON-HODGKIN'S LYMPHOMA
     Dosage: 10 MG, UNK
     Dates: start: 20090306
  7. PREDNISONE [Suspect]
     Indication: NON-HODGKIN'S LYMPHOMA
     Dosage: 60 MG/M2, UNK
     Route: 048
     Dates: start: 20090305
  8. MORPHINE [Suspect]
     Indication: BONE PAIN
     Dosage: 20 MG, UNK
     Route: 065
     Dates: start: 20090305, end: 20090309
  9. MORPHINE [Suspect]
     Dosage: 50 MG, UNK
     Dates: start: 20090306
  10. DEXCHLORPHENIRAMINE [Concomitant]
     Indication: PREMEDICATION
     Dosage: 5 MG, UNK
     Dates: start: 20090305
  11. METHYLPREDNISOLONE [Concomitant]
     Indication: PREMEDICATION
     Dosage: 107 MG, UNK
     Dates: start: 20090306
  12. ACETAMINOPHEN [Concomitant]
     Indication: PREMEDICATION
     Dosage: 1 G, UNK
     Dates: start: 20090305
  13. ALLOPURINOL [Concomitant]
     Indication: DRUG USE FOR UNKNOWN INDICATION
     Dosage: UNK
     Dates: start: 20090302
  14. VALACYCLOVIR HCL [Concomitant]
     Indication: DRUG USE FOR UNKNOWN INDICATION
     Dosage: UNK
     Dates: start: 20090302
  15. ATARAX [Concomitant]
     Indication: DRUG USE FOR UNKNOWN INDICATION
     Dosage: UNK
     Dates: start: 20090302
  16. BACTRIM DS [Concomitant]
     Indication: DRUG USE FOR UNKNOWN INDICATION
     Dosage: UNK
     Dates: start: 20090302
  17. OMEPRAZOLE [Concomitant]
     Indication: DRUG USE FOR UNKNOWN INDICATION
     Dosage: UNK
     Dates: start: 20090302
  18. LOVENOX [Concomitant]
     Indication: DRUG USE FOR UNKNOWN INDICATION
     Dosage: UNK
     Dates: start: 20090302
  19. HYDROCORTISONE [Concomitant]
     Indication: PREMEDICATION
     Dosage: UNK
     Dates: start: 20090305

REACTIONS (5)
  - BONE PAIN [None]
  - DYSPNOEA [None]
  - HYPOXIA [None]
  - INTESTINAL OBSTRUCTION [None]
  - RESPIRATORY DISTRESS [None]
